FAERS Safety Report 6248761-3 (Version None)
Quarter: 2009Q2

REPORT INFORMATION
  Report Type: 
  Country: None (occurrence: None)
  Receive Date: 20090624
  Receipt Date: 20090612
  Transmission Date: 20091009
  Serious: Yes (Death, Hospitalization, Other)
  Sender: FDA-Public Use
  Company Number: ADE# 09-249DPR

PATIENT
  Age: 58 Year
  Sex: Male

DRUGS (3)
  1. DIGOXIN [Suspect]
     Indication: BLOOD PRESSURE
     Dosage: ONE TABLET DAILY
  2. METHOTREXATE [Concomitant]
  3. ERECTILE DYSFUNCTION MEDICATIONS [Concomitant]

REACTIONS (4)
  - CARDIAC FLUTTER [None]
  - HEART RATE DECREASED [None]
  - HEART RATE INCREASED [None]
  - HEART RATE IRREGULAR [None]
